FAERS Safety Report 21790400 (Version 3)
Quarter: 2023Q1

REPORT INFORMATION
  Report Type: Spontaneous
  Country: US (occurrence: US)
  Receive Date: 20221228
  Receipt Date: 20230223
  Transmission Date: 20230418
  Serious: Yes (Hospitalization, Other)
  Sender: FDA-Public Use
  Company Number: US-TEVA-2022-US-2841541

PATIENT
  Age: 60 Year
  Sex: Female
  Weight: 147.4 kg

DRUGS (17)
  1. AMLODIPINE\HYDROCHLOROTHIAZIDE\VALSARTAN [Suspect]
     Active Substance: AMLODIPINE\HYDROCHLOROTHIAZIDE\VALSARTAN
     Indication: Hypertension
     Dosage: 1 DOSAGE FORMS DAILY; AMLODIPINE 10MG/VALSARTAN 320MG/HYDROCHLOROTHIZIDE 25 MG
     Route: 048
     Dates: start: 20170828, end: 20170927
  2. AMLODIPINE\HYDROCHLOROTHIAZIDE\VALSARTAN [Suspect]
     Active Substance: AMLODIPINE\HYDROCHLOROTHIAZIDE\VALSARTAN
     Indication: Hypertension
     Dosage: 1 DOSAGE FORMS DAILY; AMLODIPINE 10MG/VALSARTAN 320MG/HYDROCHLOROTHIZIDE 25 MG
     Route: 048
     Dates: start: 20170929, end: 20181031
  3. FLUOXETINE [Concomitant]
     Active Substance: FLUOXETINE HYDROCHLORIDE
     Indication: Mixed anxiety and depressive disorder
     Dosage: 40 MILLIGRAM DAILY; ONCE AT NIGHT
     Dates: start: 2015, end: 2020
  4. MELOXICAM [Concomitant]
     Active Substance: MELOXICAM
     Indication: Pain
     Dosage: 30 MILLIGRAM DAILY;
     Dates: start: 2015, end: 2020
  5. MELOXICAM [Concomitant]
     Active Substance: MELOXICAM
     Indication: Inflammation
  6. VERAPAMIL HYDROCHLORIDE [Concomitant]
     Active Substance: VERAPAMIL HYDROCHLORIDE
     Indication: Hypertension
     Dosage: 240 MILLIGRAM DAILY;
     Dates: start: 2015, end: 2017
  7. LOSARTAN [Concomitant]
     Active Substance: LOSARTAN
     Indication: Hypertension
     Dosage: 50 MILLIGRAM DAILY;
     Dates: start: 2015, end: 2019
  8. LOVASTATIN [Concomitant]
     Active Substance: LOVASTATIN
     Indication: Hypertension
     Dosage: 40 MILLIGRAM DAILY; ONCE AT NIGHT
     Dates: start: 2014, end: 2021
  9. METHOCARBAMOL [Concomitant]
     Active Substance: METHOCARBAMOL
     Indication: Muscle relaxant therapy
     Dosage: 750 MILLIGRAM DAILY; ONCE AT NIGHT
     Dates: start: 2015, end: 2019
  10. TRAMADOL HCL [Concomitant]
     Active Substance: TRAMADOL HYDROCHLORIDE
     Indication: Pain
     Dosage: 200 MILLIGRAM DAILY;
     Dates: start: 2015, end: 2020
  11. ATORVASTATIN [Concomitant]
     Active Substance: ATORVASTATIN
     Indication: Blood cholesterol increased
     Dosage: 10 MILLIGRAM DAILY;
     Dates: start: 2016, end: 2017
  12. HYDROCHLOROTHIAZIDE [Concomitant]
     Active Substance: HYDROCHLOROTHIAZIDE
     Indication: Hypertension
     Dosage: 25 MILLIGRAM DAILY;
     Dates: start: 2014, end: 2018
  13. PANTOPRAZOLE [Concomitant]
     Active Substance: PANTOPRAZOLE
     Indication: Dyspepsia
     Dosage: 40 MILLIGRAM DAILY;
     Dates: start: 2017, end: 2020
  14. VITAMIN D2 [Concomitant]
     Active Substance: ERGOCALCIFEROL
     Indication: Vitamin supplementation
     Dosage: 5000 IU (INTERNATIONAL UNIT) DAILY;
     Dates: start: 2017, end: 2018
  15. ASPIRIN [Concomitant]
     Active Substance: ASPIRIN
     Indication: Cardiovascular event prophylaxis
     Dosage: 81 MILLIGRAM DAILY;
     Dates: start: 2016
  16. VITAMIN B12 [Concomitant]
     Active Substance: CYANOCOBALAMIN
     Indication: Vitamin supplementation
     Dosage: 1000 MILLIGRAM DAILY;
     Dates: start: 2017
  17. VITAMINS [Concomitant]
     Active Substance: VITAMINS
     Indication: Vitamin supplementation
     Dosage: 2 DOSAGE FORMS DAILY;
     Dates: start: 2015

REACTIONS (1)
  - Gastrointestinal stromal tumour [Recovered/Resolved]
